FAERS Safety Report 9228097 (Version 3)
Quarter: 2013Q4

REPORT INFORMATION
  Report Type: Spontaneous
  Country: PL (occurrence: None)
  Receive Date: 20130410
  Receipt Date: 20131002
  Transmission Date: 20140711
  Serious: Yes (Hospitalization, Other)
  Sender: FDA-Public Use
  Company Number: 2013MPI00195

PATIENT
  Age: 24 Year
  Sex: Female
  Weight: 52 kg

DRUGS (1)
  1. BRENTUXIMAB VEDOTIN [Suspect]
     Indication: HODGKIN^S DISEASE
     Route: 042
     Dates: start: 20121214

REACTIONS (11)
  - Progressive multifocal leukoencephalopathy [None]
  - Pyrexia [None]
  - Hepatotoxicity [None]
  - Dermatitis bullous [None]
  - Chest pain [None]
  - Abdominal pain [None]
  - Abdominal pain lower [None]
  - Pain in extremity [None]
  - Burning sensation [None]
  - Chills [None]
  - Transient ischaemic attack [None]
